FAERS Safety Report 8599363-5 (Version None)
Quarter: 2012Q3

REPORT INFORMATION
  Report Type: 
  Country: None (occurrence: None)
  Receive Date: 20120816
  Receipt Date: 20120801
  Transmission Date: 20120928
  Serious: Yes (Other)
  Sender: FDA-Public Use
  Company Number: FR-FRI-1000031589

PATIENT
  Sex: Male
  Weight: 73 kg

DRUGS (7)
  1. IRBESARTAN AND HYDROCHLOROTHIAZIDE [Concomitant]
     Dosage: 150 MG
     Route: 048
  2. BISOPROLOL FUMARATE [Concomitant]
     Dosage: 7.5 MG
     Route: 048
  3. DEPAKENE [Concomitant]
     Dosage: 1000 MG
     Route: 048
  4. ESCITALOPRAM [Suspect]
     Indication: MAJOR DEPRESSION
     Dosage: 10 MG
     Route: 048
     Dates: start: 20120515, end: 20120515
  5. AMLODIPINE BESYLATE [Concomitant]
     Dosage: 10 MG
     Route: 048
  6. OXAZEPAM [Concomitant]
     Dosage: 200 MG
     Route: 048
  7. ZOCOR [Concomitant]
     Dosage: 20 MG
     Route: 048

REACTIONS (1)
  - GRAND MAL CONVULSION [None]
